FAERS Safety Report 7157353-3 (Version None)
Quarter: 2010Q4

REPORT INFORMATION
  Report Type: 
  Country: None (occurrence: None)
  Receive Date: 20101214
  Receipt Date: 20101130
  Transmission Date: 20110411
  Serious: No
  Sender: FDA-Public Use
  Company Number: US-PFIZER INC-US-WYE-H15464910

PATIENT
  Age: 52 Year
  Sex: Female
  Weight: 74 kg

DRUGS (14)
  1. PREMARIN [Suspect]
     Indication: PRODUCT USED FOR UNKNOWN INDICATION
     Dosage: UNK
     Route: 067
     Dates: start: 20070502
  2. ATENOLOL [Concomitant]
     Dosage: 25 MG, 1X/DAY
  3. BUSPAR [Concomitant]
     Dosage: 5 MG, 2X/DAY
  4. CARAFATE [Concomitant]
     Dosage: UNK
  5. DEPAKOTE [Concomitant]
     Dosage: UNK
  6. ESTRATEST [Concomitant]
     Dosage: UNK
     Route: 048
  7. HYOSCYAMINE [Concomitant]
     Dosage: 0.25 MG, EVERY 4 HRS
  8. PARACET [Concomitant]
     Dosage: UNK
  9. PHENERGAN ^AVENTIS PHARMA^ [Concomitant]
     Dosage: UNK
  10. PRILOSEC [Concomitant]
     Dosage: 20 MG, 1X/DAY
     Route: 048
  11. PRIMIDONE [Concomitant]
     Dosage: UNK
  12. SYNTHROID [Concomitant]
     Dosage: 150 UNK, UNK
     Route: 048
  13. TEMAZEPAM [Concomitant]
     Dosage: 30 MG, 1X/DAY
     Route: 048
  14. WELLBUTRIN SR [Concomitant]
     Dosage: 150 MG, 1X/DAY
     Route: 048

REACTIONS (1)
  - VAGINAL INFECTION [None]
